FAERS Safety Report 4860148-4 (Version None)
Quarter: 2005Q4

REPORT INFORMATION
  Report Type: 
  Country: None (occurrence: None)
  Receive Date: 20051219
  Receipt Date: 20051209
  Transmission Date: 20060501
  Serious: Yes (Hospitalization)
  Sender: FDA-Public Use
  Company Number: DE-ROCHE-427985

PATIENT
  Age: 66 Year
  Sex: Female

DRUGS (3)
  1. MYCOPHENOLATE MOFETIL [Suspect]
     Route: 048
     Dates: start: 20050908
  2. FK506 [Suspect]
     Route: 048
     Dates: start: 20050908
  3. DECORTIN-H [Suspect]
     Route: 048
     Dates: start: 20050908

REACTIONS (2)
  - GLOMERULONEPHRITIS [None]
  - KIDNEY TRANSPLANT REJECTION [None]
